FAERS Safety Report 5883526-3 (Version None)
Quarter: 2008Q3

REPORT INFORMATION
  Report Type: 
  Country: None (occurrence: None)
  Receive Date: 20080915
  Receipt Date: 20080909
  Transmission Date: 20090109
  Serious: Yes (Other)
  Sender: FDA-Public Use
  Company Number: GB-AVENTIS-200817232GDDC

PATIENT
  Age: 50 Year
  Sex: Female
  Weight: 64 kg

DRUGS (1)
  1. LANTUS [Suspect]
     Route: 058

REACTIONS (4)
  - DIZZINESS [None]
  - HYPOTENSION [None]
  - OEDEMA [None]
  - VISION BLURRED [None]
